FAERS Safety Report 6056215-2 (Version None)
Quarter: 2009Q1

REPORT INFORMATION
  Report Type: 
  Country: None (occurrence: None)
  Receive Date: 20090129
  Receipt Date: 20090123
  Transmission Date: 20090719
  Serious: Yes (Other)
  Sender: FDA-Public Use
  Company Number: GB-WYE-G02994909

PATIENT
  Age: 78 Year
  Sex: Male

DRUGS (3)
  1. EFFEXOR [Suspect]
     Dosage: 75 MG (FREQUENCY UNKNOWN)
     Route: 048
     Dates: start: 20080101, end: 20081201
  2. EFFEXOR [Suspect]
     Dosage: 32.5 MG (FREQUENCY UNKNOWN)
     Route: 048
     Dates: start: 20081201
  3. ACETAMINOPHEN [Concomitant]

REACTIONS (5)
  - AGGRESSION [None]
  - DRUG WITHDRAWAL SYNDROME [None]
  - DYSPEPSIA [None]
  - HERNIA [None]
  - TINNITUS [None]
